FAERS Safety Report 23739123 (Version 2)
Quarter: 2024Q2

REPORT INFORMATION
  Report Type: Report from Study
  Country: GB (occurrence: GB)
  Receive Date: 20240413
  Receipt Date: 20240422
  Transmission Date: 20240716
  Serious: Yes (Other)
  Sender: FDA-Public Use
  Company Number: GB-SA-SAC20231117000372

PATIENT
  Age: 45 Year
  Sex: Female

DRUGS (2)
  1. DUPILUMAB [Suspect]
     Active Substance: DUPILUMAB
     Indication: Asthma
     Dosage: 400 MG, 1X
     Route: 058
     Dates: start: 20231031, end: 20231031
  2. DUPILUMAB [Suspect]
     Active Substance: DUPILUMAB
     Dosage: 200 MG, QOW
     Route: 058
     Dates: start: 2023

REACTIONS (22)
  - Night blindness [Unknown]
  - Alopecia [Unknown]
  - Acanthamoeba keratitis [Not Recovered/Not Resolved]
  - Hypopyon [Unknown]
  - Keratic precipitates [Unknown]
  - Impaired quality of life [Unknown]
  - Asthma [Unknown]
  - Dyspnoea [Unknown]
  - Blindness unilateral [Not Recovered/Not Resolved]
  - Ocular surface disease [Unknown]
  - Ulcerative keratitis [Unknown]
  - Conjunctivitis [Not Recovered/Not Resolved]
  - Eye pain [Not Recovered/Not Resolved]
  - Corneal abrasion [Not Recovered/Not Resolved]
  - Photophobia [Not Recovered/Not Resolved]
  - Neovascularisation [Unknown]
  - Infection parasitic [Unknown]
  - Corneal erosion [Unknown]
  - Corneal disorder [Unknown]
  - Malaise [Not Recovered/Not Resolved]
  - Herpes zoster [Unknown]
  - Eye swelling [Unknown]

NARRATIVE: CASE EVENT DATE: 20230101
